FAERS Safety Report 6040205-X (Version None)
Quarter: 2009Q1

REPORT INFORMATION
  Report Type: 
  Country: None (occurrence: None)
  Receive Date: 20090116
  Receipt Date: 20080114
  Transmission Date: 20090719
  Serious: No
  Sender: FDA-Public Use
  Company Number: US-BRISTOL-MYERS SQUIBB COMPANY-14039275

PATIENT
  Age: 75 Year
  Sex: Female
  Weight: 63 kg

DRUGS (2)
  1. ABILIFY [Suspect]
     Dosage: FROM 11/1/2007 TO 12/6/2007 10MG,AND INCREASED TO 15MG AFTER 1-2 WEEKS
     Route: 048
     Dates: start: 20071101
  2. MOM [Concomitant]

REACTIONS (5)
  - DRY MOUTH [None]
  - HYPERHIDROSIS [None]
  - INCREASED APPETITE [None]
  - PRURITUS [None]
  - VISION BLURRED [None]
